FAERS Safety Report 5874803-0 (Version None)
Quarter: 2008Q3

REPORT INFORMATION
  Report Type: 
  Country: None (occurrence: None)
  Receive Date: 20080908
  Receipt Date: 20080908
  Transmission Date: 20090109
  Serious: Yes (Death)
  Sender: FDA-Public Use
  Company Number: None

PATIENT
  Sex: Male
  Weight: 79.3795 kg

DRUGS (1)
  1. FENTANYL-75 [Suspect]
     Dosage: 1 PATCH Q 3 DAYS TD
     Route: 062

REACTIONS (3)
  - BRAIN INJURY [None]
  - DRUG TOXICITY [None]
  - ROAD TRAFFIC ACCIDENT [None]
